FAERS Safety Report 7880103 (Version 8)
Quarter: 2013Q3

REPORT INFORMATION
  Report Type: Spontaneous
  Country: US (occurrence: US)
  Receive Date: 20110331
  Receipt Date: 20130920
  Transmission Date: 20140515
  Serious: Yes (Death, Hospitalization, Other)
  Sender: FDA-Public Use
  Company Number: US-AMGEN-USASP2011015761

PATIENT
  Age: 61 Year
  Sex: Female
  Weight: 54.42 kg

DRUGS (1)
  1. ENBREL [Suspect]
     Indication: PSORIATIC ARTHROPATHY
     Dosage: 50 MG, QWK
     Route: 058
     Dates: start: 2006, end: 201102

REACTIONS (7)
  - Creutzfeldt-Jakob disease [Fatal]
  - Dementia [Not Recovered/Not Resolved]
  - Confusional state [Unknown]
  - Amnesia [Unknown]
  - Headache [Unknown]
  - Aphonia [Not Recovered/Not Resolved]
  - Impaired self-care [Not Recovered/Not Resolved]
